FAERS Safety Report 4549389-3 (Version None)
Quarter: 2005Q1

REPORT INFORMATION
  Report Type: 
  Country: None (occurrence: None)
  Receive Date: 20050106
  Receipt Date: 20041221
  Transmission Date: 20050727
  Serious: Yes (Hospitalization)
  Sender: FDA-Public Use
  Company Number: 2004BI000558

PATIENT
  Age: 44 Year
  Sex: Female
  Weight: 75.2971 kg

DRUGS (8)
  1. AVONEX [Suspect]
     Indication: MULTIPLE SCLEROSIS
     Dosage: 30 UG;QW; IM
     Route: 030
     Dates: start: 20030201, end: 20040101
  2. DIOVAN [Concomitant]
  3. MOTRIN [Concomitant]
  4. PREVACID [Concomitant]
  5. PROVIGIL [Concomitant]
  6. ALLEGRA [Concomitant]
  7. QUININE [Concomitant]
  8. DITROPAN [Concomitant]

REACTIONS (7)
  - ABDOMINAL PAIN [None]
  - DRUG HYPERSENSITIVITY [None]
  - HEADACHE [None]
  - INFLUENZA LIKE ILLNESS [None]
  - MEDICATION ERROR [None]
  - MYALGIA [None]
  - VAGINAL HAEMORRHAGE [None]
